FAERS Safety Report 16978389 (Version 1)
Quarter: 2019Q4

REPORT INFORMATION
  Report Type: Spontaneous
  Country: US (occurrence: US)
  Receive Date: 20190916
  Receipt Date: 20190916
  Transmission Date: 20200122
  Serious: No
  Sender: FDA-Public Use
  Company Number: None

PATIENT
  Age: 68 Year
  Sex: Female
  Weight: 141.52 kg

DRUGS (1)
  1. XELJANZ XR [Suspect]
     Active Substance: TOFACITINIB CITRATE
     Indication: RHEUMATOID ARTHRITIS
     Route: 048
     Dates: start: 201908

REACTIONS (7)
  - Gait disturbance [None]
  - Musculoskeletal pain [None]
  - Neck pain [None]
  - Headache [None]
  - Diarrhoea [None]
  - Balance disorder [None]
  - Dyspnoea [None]
